FAERS Safety Report 9467466 (Version 2)
Quarter: 2013Q3

REPORT INFORMATION
  Report Type: Spontaneous
  Country: GB (occurrence: GB)
  Receive Date: 20130821
  Receipt Date: 20130906
  Transmission Date: 20140515
  Serious: Yes (Death, Other)
  Sender: FDA-Public Use
  Company Number: PHFR2013GB004790

PATIENT
  Sex: Male

DRUGS (7)
  1. CLOZARIL [Suspect]
     Indication: SCHIZOPHRENIA
     Dosage: 225 MG, UNK
     Route: 048
     Dates: start: 1997
  2. CLOZARIL [Suspect]
     Dosage: UNK
     Route: 048
     Dates: start: 20010701
  3. RISPERIDONE [Concomitant]
     Indication: SCHIZOPHRENIA
     Route: 048
  4. SERTRALINE [Concomitant]
     Indication: DEPRESSION
     Dosage: UNK
  5. HYOSCINE [Concomitant]
     Indication: SALIVARY HYPERSECRETION
     Dosage: UNK
     Route: 048
  6. ATORVASTATIN [Concomitant]
     Dosage: UNK
  7. ASPARIN [Concomitant]
     Dosage: UNK

REACTIONS (2)
  - Congestive cardiomyopathy [Fatal]
  - Diabetes mellitus [Unknown]
